FAERS Safety Report 8673442 (Version 2)
Quarter: 2013Q2

REPORT INFORMATION
  Report Type: Spontaneous
  Country: FR (occurrence: FR)
  Receive Date: 20120719
  Receipt Date: 20130422
  Transmission Date: 20140414
  Serious: Yes (Hospitalization)
  Sender: FDA-Public Use
  Company Number: PHHY2012FR061581

PATIENT
  Age: 54 Year
  Sex: Male

DRUGS (3)
  1. VOLTARENE [Suspect]
     Indication: SCIATICA
     Dosage: UNK UKN, UNK
     Route: 048
     Dates: start: 201206, end: 20120629
  2. IXPRIM [Suspect]
     Indication: SCIATICA
     Dosage: UNK UKN, UNK
     Route: 048
     Dates: start: 201206, end: 20120629
  3. PROTON PUMP INHIBITORS [Concomitant]
     Dosage: UNK UKN, UNK

REACTIONS (6)
  - Diverticulum intestinal haemorrhagic [Not Recovered/Not Resolved]
  - Rectal haemorrhage [Recovered/Resolved]
  - Angiodysplasia [Not Recovered/Not Resolved]
  - Anaemia [Recovered/Resolved]
  - Hypotension [Recovered/Resolved]
  - Syncope [Unknown]
